FAERS Safety Report 24448054 (Version 1)
Quarter: 2024Q4

REPORT INFORMATION
  Report Type: Spontaneous
  Country: US (occurrence: US)
  Receive Date: 20241016
  Receipt Date: 20241016
  Transmission Date: 20250115
  Serious: Yes (Other)
  Sender: DR REDDYS
  Company Number: None

PATIENT
  Age: 7 Decade
  Sex: Female

DRUGS (5)
  1. ZOLPIDEM [Suspect]
     Active Substance: ZOLPIDEM TARTRATE
     Indication: Insomnia
  2. SERTRALINE [Concomitant]
     Active Substance: SERTRALINE HYDROCHLORIDE
     Indication: Major depression
  3. SERTRALINE [Concomitant]
     Active Substance: SERTRALINE HYDROCHLORIDE
     Indication: Psychotic symptom
  4. BUPROPION [Concomitant]
     Active Substance: BUPROPION
     Indication: Major depression
  5. BUPROPION [Concomitant]
     Active Substance: BUPROPION
     Indication: Psychotic symptom

REACTIONS (2)
  - Aggression [Recovering/Resolving]
  - Mental status changes [Recovering/Resolving]
